FAERS Safety Report 7997459-X (Version None)
Quarter: 2011Q4

REPORT INFORMATION
  Report Type: 
  Country: None (occurrence: None)
  Receive Date: 20111221
  Receipt Date: 20111214
  Transmission Date: 20120403
  Serious: Yes (Other)
  Sender: FDA-Public Use
  Company Number: JP-PFIZER INC-2011303845

PATIENT
  Age: 2 Year
  Sex: Female
  Weight: 30 kg

DRUGS (3)
  1. CYCLOSPORINE [Interacting]
     Dosage: 3 MG/KG, UNK
  2. METHYLPREDNISOLONE SODIUM SUCCINATE [Suspect]
     Dosage: 375 MG, DAILY
  3. CYCLOSPORINE [Interacting]
     Dosage: 6 MG/KG, UNK

REACTIONS (2)
  - DRUG INTERACTION [None]
  - POSTERIOR REVERSIBLE ENCEPHALOPATHY SYNDROME [None]
